FAERS Safety Report 16490995 (Version 1)
Quarter: 2019Q3

REPORT INFORMATION
  Report Type: Spontaneous
  Country: US (occurrence: US)
  Receive Date: 20190627
  Receipt Date: 20190627
  Transmission Date: 20191004
  Serious: No
  Sender: FDA-Public Use
  Company Number: None

PATIENT
  Sex: Male

DRUGS (2)
  1. TRAMADOL 50 MG [Suspect]
     Active Substance: TRAMADOL
  2. IBUPROFEN 800MG [Suspect]
     Active Substance: IBUPROFEN

REACTIONS (1)
  - Drug ineffective [None]
